FAERS Safety Report 10708080 (Version 3)
Quarter: 2015Q1

REPORT INFORMATION
  Report Type: Spontaneous
  Country: DZ (occurrence: DZ)
  Receive Date: 20150113
  Receipt Date: 20150224
  Transmission Date: 20150721
  Serious: Yes (Death, Hospitalization)
  Sender: FDA-Public Use
  Company Number: DZ-SA-2015SA002836

PATIENT
  Age: 64 Year
  Sex: Male
  Weight: 70 kg

DRUGS (2)
  1. TAXOTERE [Suspect]
     Active Substance: DOCETAXEL
     Indication: PROSTATE CANCER
     Dosage: DOCETAXEL 80 MG /20 MG
     Route: 042
     Dates: start: 20141222, end: 20141222
  2. TAXOTERE [Suspect]
     Active Substance: DOCETAXEL
     Indication: PROSTATE CANCER
     Dosage: DOCETAXEL 80 MG /20 MG
     Route: 042
     Dates: start: 20141222, end: 20141222

REACTIONS (7)
  - Thrombocytopenia [Fatal]
  - Cardiac arrest [Fatal]
  - Febrile bone marrow aplasia [Fatal]
  - Leukopenia [Fatal]
  - Neutropenia [Fatal]
  - Vomiting [Fatal]
  - Altered state of consciousness [Fatal]

NARRATIVE: CASE EVENT DATE: 20141222
